FAERS Safety Report 20013786 (Version 1)
Quarter: 2021Q4

REPORT INFORMATION
  Report Type: Report from Study
  Country: CA (occurrence: CA)
  Receive Date: 20211029
  Receipt Date: 20211029
  Transmission Date: 20220303
  Serious: Yes (Other)
  Sender: FDA-Public Use
  Company Number: CA-002147023-NVSC2021CA240375

PATIENT

DRUGS (1)
  1. RUXOLITINIB [Suspect]
     Active Substance: RUXOLITINIB
     Indication: Polycythaemia vera
     Dosage: UNK, BID
     Route: 065

REACTIONS (14)
  - Contusion [Unknown]
  - Insomnia [Unknown]
  - Dizziness [Unknown]
  - Drug ineffective [Unknown]
  - Haemorrhage [Unknown]
  - Fatigue [Unknown]
  - Early satiety [Unknown]
  - Quality of life decreased [Unknown]
  - Product dose omission issue [Unknown]
  - Hypoaesthesia [Unknown]
  - Headache [Unknown]
  - Paraesthesia [Unknown]
  - Vertigo [Unknown]
  - Visual impairment [Unknown]
